FAERS Safety Report 8836391 (Version 1)
Quarter: 2012Q4

REPORT INFORMATION
  Report Type: 
  Country: US (occurrence: US)
  Receive Date: 20121011
  Receipt Date: 20121011
  Transmission Date: 20130627
  Serious: No
  Sender: FDA-Public Use
  Company Number: US-NOVEN-12US005089

PATIENT
  Age: 51 Year
  Sex: Female

DRUGS (4)
  1. FENTANYL [Suspect]
     Indication: BACK PAIN
     Dosage: 25 ug/hr
     Route: 062
     Dates: start: 2012
  2. GABAPENTIN [Concomitant]
     Indication: PAIN
     Route: 048
  3. STOOL SOFTENER [Concomitant]
     Indication: CONSTIPATION
     Route: 048
  4. VITAMINS [Concomitant]
     Indication: SUPPLEMENTATION THERAPY
     Route: 048

REACTIONS (2)
  - Inadequate analgesia [Not Recovered/Not Resolved]
  - Product quality issue [Not Recovered/Not Resolved]
